FAERS Safety Report 6707203-1 (Version None)
Quarter: 2010Q2

REPORT INFORMATION
  Report Type: 
  Country: None (occurrence: None)
  Receive Date: 20100503
  Receipt Date: 20091116
  Transmission Date: 20101027
  Serious: No
  Sender: FDA-Public Use
  Company Number: US-ASTRAZENECA-2009SE26660

PATIENT
  Age: 51 Year
  Sex: Male

DRUGS (10)
  1. NEXIUM [Suspect]
     Indication: GASTROOESOPHAGEAL REFLUX DISEASE
     Route: 048
     Dates: start: 20010101
  2. ACIPHEX [Concomitant]
  3. ZANTAC [Concomitant]
  4. NEURONTIN [Concomitant]
  5. OXYCODONE [Concomitant]
     Indication: RENAL PAIN
  6. TESTOSTERONE [Concomitant]
  7. FENTANYL-25 [Concomitant]
  8. CLONAZEPAM [Concomitant]
  9. PEPTAMEN [Concomitant]
  10. VITAMIN D [Concomitant]

REACTIONS (2)
  - GASTROOESOPHAGEAL REFLUX DISEASE [None]
  - INTENTIONAL DRUG MISUSE [None]
